FAERS Safety Report 5250722-8 (Version None)
Quarter: 2007Q1

REPORT INFORMATION
  Report Type: 
  Country: None (occurrence: None)
  Receive Date: 20070228
  Receipt Date: 20060626
  Transmission Date: 20070707
  Serious: No
  Sender: FDA-Public Use
  Company Number: US-GLAXOSMITHKLINE-A0610326A

PATIENT
  Sex: Female

DRUGS (6)
  1. LAMICTAL [Suspect]
     Indication: BIPOLAR DISORDER
     Dosage: 25MG PER DAY
     Route: 048
     Dates: start: 20060606, end: 20060623
  2. PAXIL [Concomitant]
  3. TOPAMAX [Concomitant]
  4. PREMARIN [Concomitant]
  5. XANAX [Concomitant]
  6. VITAMIN [Concomitant]

REACTIONS (1)
  - RASH [None]
